FAERS Safety Report 7349642-4 (Version None)
Quarter: 2011Q1

REPORT INFORMATION
  Report Type: 
  Country: None (occurrence: None)
  Receive Date: 20110314
  Receipt Date: 20100713
  Transmission Date: 20110831
  Serious: No
  Sender: FDA-Public Use
  Company Number: A0872191A

PATIENT
  Age: 68 Year
  Sex: Male
  Weight: 113.6 kg

DRUGS (11)
  1. AUGMENTIN '125' [Suspect]
     Dosage: 875MG TWICE PER DAY
     Route: 048
     Dates: start: 20100113
  2. LEVOTHYROXINE [Concomitant]
     Dosage: 100MCG PER DAY
  3. ASPIRIN [Concomitant]
     Dosage: 325MG PER DAY
  4. ZIANA [Suspect]
     Indication: ACNE
     Route: 061
     Dates: start: 20100409
  5. DIAZEPAM [Concomitant]
     Dosage: 10MG AT NIGHT
     Dates: start: 20100401
  6. PRAVASTATIN [Concomitant]
     Dosage: 40MG PER DAY
  7. HYDROCHLOROTHIAZIDE [Concomitant]
     Dosage: 25MG PER DAY
  8. ADVIL PM [Concomitant]
     Dosage: 2TAB AT NIGHT
  9. LISINOPRIL [Concomitant]
     Dosage: 20MG PER DAY
  10. FISH OIL [Concomitant]
     Dosage: 1200MG PER DAY
  11. ZETIA [Concomitant]
     Dosage: 10MG PER DAY

REACTIONS (2)
  - TONGUE DISCOLOURATION [None]
  - ORAL FUNGAL INFECTION [None]
